FAERS Safety Report 9354194 (Version 1)
Quarter: 2013Q2

REPORT INFORMATION
  Report Type: Spontaneous
  Country: NL (occurrence: NL)
  Receive Date: 20130618
  Receipt Date: 20130618
  Transmission Date: 20140414
  Serious: Yes (Other)
  Sender: FDA-Public Use
  Company Number: NL-GLAXOSMITHKLINE-B0900381A

PATIENT
  Age: 49 Year
  Sex: Female
  Weight: 71 kg

DRUGS (5)
  1. LAMICTAL [Suspect]
     Indication: EPILEPSY
     Route: 048
     Dates: start: 1995
  2. MIRENA [Suspect]
     Indication: MENORRHAGIA
     Route: 015
     Dates: start: 20101201
  3. CARBAMAZEPINE [Suspect]
     Indication: EPILEPSY
     Route: 048
     Dates: start: 1995
  4. RIVOTRIL [Suspect]
     Indication: EPILEPSY
     Route: 048
     Dates: start: 1995
  5. ASCAL [Concomitant]
     Dosage: 100MG PER DAY
     Dates: start: 1995

REACTIONS (2)
  - Epilepsy [Recovered/Resolved]
  - Drug interaction [Recovered/Resolved]
